FAERS Safety Report 19945847 (Version 1)
Quarter: 2021Q4

REPORT INFORMATION
  Report Type: Spontaneous
  Country: EG (occurrence: EG)
  Receive Date: 20211012
  Receipt Date: 20211012
  Transmission Date: 20220303
  Serious: Yes (Other)
  Sender: FDA-Public Use
  Company Number: EG-PFIZER INC-202101269601

PATIENT
  Age: 78 Year
  Sex: Female

DRUGS (5)
  1. IBRANCE [Suspect]
     Active Substance: PALBOCICLIB
     Indication: Breast cancer
     Dosage: ONE TABLET FROM D1 TO D21 THEN ONE WEEK OFF
     Route: 048
  2. FASLODEX [Concomitant]
     Active Substance: FULVESTRANT
     Dosage: 250 MG 2 AMPOULES ONCE EVERY 4 WEEKS WITH 2 AMPOULES IN THE MIDDLE OF THE FIRST MONTH (ADDITIONAL)
     Route: 030
  3. OSTEOCARE [CALCIUM;COLECALCIFEROL;MAGNESIUM;ZINC] [Concomitant]
     Dosage: 1 DF, DAILY
  4. XGEVA [Concomitant]
     Active Substance: DENOSUMAB
     Dosage: 120 MG, CYCLIC; EVERY 4 WEEKS
     Route: 058
  5. VIT D [VITAMIN D NOS] [Concomitant]
     Dosage: 1 DF, DAILY

REACTIONS (1)
  - Arthropathy [Unknown]
